FAERS Safety Report 8078178-0 (Version None)
Quarter: 2012Q1

REPORT INFORMATION
  Report Type: 
  Country: None (occurrence: None)
  Receive Date: 20120127
  Receipt Date: 20070515
  Transmission Date: 20120608
  Serious: Yes (Disabling)
  Sender: FDA-Public Use
  Company Number: JP-SANTEN INC.-INC-11-000223

PATIENT
  Age: 60 Year
  Sex: Male

DRUGS (3)
  1. LEVOFLOXACIN [Suspect]
  2. NONCORT [Concomitant]
     Dosage: 6 TIMES DAILY
     Route: 047
     Dates: start: 20070410, end: 20070505
  3. LEVOFLOXACIN [Suspect]
     Indication: KERATITIS BACTERIAL
     Dosage: 6 TIMES DAILY
     Route: 047
     Dates: start: 20070410, end: 20070505

REACTIONS (2)
  - CORNEAL PERFORATION [None]
  - ULCERATIVE KERATITIS [None]
